FAERS Safety Report 5100724-7 (Version None)
Quarter: 2006Q3

REPORT INFORMATION
  Report Type: 
  Country: None (occurrence: None)
  Receive Date: 20060906
  Receipt Date: 20060821
  Transmission Date: 20061208
  Serious: Yes (Other)
  Sender: FDA-Public Use
  Company Number: 2006103916

PATIENT
  Sex: Male

DRUGS (4)
  1. VIAGRA [Suspect]
     Indication: DRUG USE FOR UNKNOWN INDICATION
  2. ABILIFY [Concomitant]
  3. LAMICTAL [Concomitant]
  4. STRATTERA (ATOMOEXTINE HYDROCHLORIDE) [Concomitant]

REACTIONS (1)
  - DRUG SCREEN POSITIVE [None]
